FAERS Safety Report 12699021 (Version 1)
Quarter: 2016Q3

REPORT INFORMATION
  Report Type: Spontaneous
  Country: US (occurrence: US)
  Receive Date: 20160830
  Receipt Date: 20160830
  Transmission Date: 20161109
  Serious: No
  Sender: FDA-Public Use
  Company Number: US-GLAXOSMITHKLINE-US2016124881

PATIENT
  Sex: Female

DRUGS (12)
  1. EXCEDRIN MIGRAINE [Suspect]
     Active Substance: ACETAMINOPHEN\ASPIRIN\CAFFEINE
     Indication: MIGRAINE
     Route: 048
  2. EXCEDRIN TENSION HEADACHE [Suspect]
     Active Substance: ACETAMINOPHEN\CAFFEINE
     Indication: HEADACHE
  3. ACETAMINOPHEN. [Suspect]
     Active Substance: ACETAMINOPHEN
     Indication: MIGRAINE WITH AURA
  4. EXCEDRIN TENSION HEADACHE [Suspect]
     Active Substance: ACETAMINOPHEN\CAFFEINE
     Indication: MIGRAINE
     Route: 048
  5. ACETAMINOPHEN. [Suspect]
     Active Substance: ACETAMINOPHEN
     Indication: MIGRAINE
     Route: 048
  6. EXCEDRIN MILD HEADACHE CAPLETS [Suspect]
     Active Substance: ACETAMINOPHEN\CAFFEINE
     Indication: MIGRAINE
     Route: 048
  7. EXCEDRIN MILD HEADACHE CAPLETS [Suspect]
     Active Substance: ACETAMINOPHEN\CAFFEINE
     Indication: HEADACHE
  8. EXCEDRIN MIGRAINE [Suspect]
     Active Substance: ACETAMINOPHEN\ASPIRIN\CAFFEINE
     Indication: MIGRAINE WITH AURA
  9. ACETAMINOPHEN. [Suspect]
     Active Substance: ACETAMINOPHEN
     Indication: HEADACHE
  10. EXCEDRIN MILD HEADACHE CAPLETS [Suspect]
     Active Substance: ACETAMINOPHEN\CAFFEINE
     Indication: MIGRAINE WITH AURA
  11. EXCEDRIN TENSION HEADACHE [Suspect]
     Active Substance: ACETAMINOPHEN\CAFFEINE
     Indication: MIGRAINE WITH AURA
  12. EXCEDRIN MIGRAINE [Suspect]
     Active Substance: ACETAMINOPHEN\ASPIRIN\CAFFEINE
     Indication: HEADACHE

REACTIONS (4)
  - Drug ineffective for unapproved indication [Unknown]
  - Product use issue [Unknown]
  - Drug ineffective [Unknown]
  - Drug effect increased [Unknown]
